FAERS Safety Report 7131541-4 (Version None)
Quarter: 2010Q4

REPORT INFORMATION
  Report Type: 
  Country: None (occurrence: None)
  Receive Date: 20101201
  Receipt Date: 20101122
  Transmission Date: 20110411
  Serious: Yes (Hospitalization)
  Sender: FDA-Public Use
  Company Number: GB-ABBOTT-10P-167-0665718-00

PATIENT
  Sex: Female
  Weight: 53 kg

DRUGS (12)
  1. HUMIRA [Suspect]
     Indication: RHEUMATOID ARTHRITIS
     Route: 058
     Dates: start: 20080602
  2. METHOTREXATE [Concomitant]
     Indication: PRODUCT USED FOR UNKNOWN INDICATION
     Dates: start: 20030604
  3. METHOTREXATE [Concomitant]
     Dosage: EVERY MONDAY
     Route: 048
     Dates: start: 20091224
  4. HYDROXYCHLOROQUINE [Concomitant]
     Indication: PRODUCT USED FOR UNKNOWN INDICATION
     Dates: start: 20030604
  5. HYDROXYCHLOROQUINE [Concomitant]
     Route: 048
     Dates: start: 20091224
  6. FOLIC ACID [Concomitant]
     Indication: PRODUCT USED FOR UNKNOWN INDICATION
     Dosage: 5 MG DAILY EXCEPT MONDAYS
     Route: 048
     Dates: start: 20091224
  7. RABEPRAZOLE EC [Concomitant]
     Indication: PRODUCT USED FOR UNKNOWN INDICATION
     Route: 048
     Dates: start: 20091224
  8. RISENDRONATE [Concomitant]
     Indication: PRODUCT USED FOR UNKNOWN INDICATION
     Dosage: EVERY MONDAY
     Route: 048
     Dates: start: 20091224
  9. ADCAL D3 [Concomitant]
     Indication: PRODUCT USED FOR UNKNOWN INDICATION
     Dosage: MORNINGS EXCEPT MONDAYS. SUCK OR CHEW
     Route: 048
     Dates: start: 20091224
  10. GLUCOSAMINE [Concomitant]
     Indication: PRODUCT USED FOR UNKNOWN INDICATION
     Route: 048
     Dates: start: 20091224
  11. PEPPERMINT OIL [Concomitant]
     Indication: PRODUCT USED FOR UNKNOWN INDICATION
     Dosage: HALF AN HOUR BEFORE MEALS
     Route: 048
     Dates: start: 20091224
  12. PARACETAMOL [Concomitant]
     Indication: PAIN
     Dosage: UP TO 4 TIMES A DAY WHEN NEEDED FOR PAIN
     Route: 048
     Dates: start: 20091224

REACTIONS (1)
  - ISCHAEMIC STROKE [None]
